FAERS Safety Report 10253040 (Version 1)
Quarter: 2014Q2

REPORT INFORMATION
  Report Type: Report from Study
  Country: TN (occurrence: TN)
  Receive Date: 20140623
  Receipt Date: 20140623
  Transmission Date: 20141212
  Serious: Yes (Death)
  Sender: FDA-Public Use
  Company Number: TN-SA-2014SA077949

PATIENT
  Age: 64 Year
  Sex: Female

DRUGS (6)
  1. PLAVIX [Suspect]
     Indication: MYOCARDIAL INFARCTION
     Dosage: DOSE: 75 (UNITS NOT REPORTED)
     Route: 048
     Dates: start: 20120619, end: 20130921
  2. ASPIRIN [Concomitant]
     Route: 048
  3. IPERTEN [Concomitant]
     Route: 048
  4. VASCOR [Concomitant]
     Route: 048
  5. CORVASAL [Concomitant]
     Route: 048
  6. INSULIN [Concomitant]
     Route: 058

REACTIONS (2)
  - Dialysis related complication [Fatal]
  - Renal failure chronic [Fatal]
